FAERS Safety Report 12585834 (Version 1)
Quarter: 2016Q3

REPORT INFORMATION
  Report Type: Spontaneous
  Country: US (occurrence: US)
  Receive Date: 20160725
  Receipt Date: 20160725
  Transmission Date: 20161109
  Serious: No
  Sender: FDA-Public Use
  Company Number: US-ASTRAZENECA-2016SE77175

PATIENT
  Age: 59 Year
  Sex: Female

DRUGS (2)
  1. PRISTIQ EXTENDED-RELEASE [Concomitant]
     Active Substance: DESVENLAFAXINE SUCCINATE
     Dosage: EVERY MORNING
     Route: 065
  2. QUETIAPINE FUMARATE. [Suspect]
     Active Substance: QUETIAPINE FUMARATE
     Indication: SLEEP DISORDER
     Dosage: TWO TIMES PER DAY, ONE-HALF OF ONE-HALF A TABLET IN THE MORNING, AND 2 TO 2 AND ONE-HALF TABLETS ...
     Route: 048

REACTIONS (6)
  - Weight increased [Unknown]
  - Gait disturbance [Unknown]
  - Off label use [Unknown]
  - Hypothyroidism [Unknown]
  - Restless legs syndrome [Unknown]
  - Product use issue [Unknown]
